FAERS Safety Report 21506139 (Version 2)
Quarter: 2022Q4

REPORT INFORMATION
  Report Type: Report from Study
  Country: US (occurrence: US)
  Receive Date: 20221026
  Receipt Date: 20221210
  Transmission Date: 20230113
  Serious: Yes (Hospitalization)
  Sender: FDA-Public Use
  Company Number: US-ABBVIE-4174022

PATIENT
  Sex: Male

DRUGS (1)
  1. IMBRUVICA [Suspect]
     Active Substance: IBRUTINIB
     Indication: B-cell small lymphocytic lymphoma
     Route: 048
     Dates: start: 20220811

REACTIONS (9)
  - Hospitalisation [Unknown]
  - Back pain [Recovered/Resolved]
  - Fatigue [Unknown]
  - Blood disorder [Recovering/Resolving]
  - Dysgraphia [Unknown]
  - Spondylitis [Unknown]
  - Nasopharyngitis [Recovering/Resolving]
  - Feeling abnormal [Unknown]
  - Reading disorder [Unknown]
